FAERS Safety Report 9519978 (Version 1)
Quarter: 2013Q1

REPORT INFORMATION
  Report Type: Spontaneous
  Country: US (occurrence: None)
  Receive Date: 20130305
  Receipt Date: 20130305
  Transmission Date: 20140127
  Serious: Yes (Hospitalization)
  Sender: FDA-Public Use
  Company Number: 163-21880-12013069

PATIENT
  Age: 91 Year
  Sex: Female
  Weight: 65.32 kg

DRUGS (4)
  1. REVLIMID [Suspect]
     Indication: MYELODYSPLASTIC SYNDROME
     Route: 048
     Dates: start: 201005
  2. SYNTHROID (LEVOTHYROXINE SODIUM) (UNKNOWN) [Concomitant]
  3. METOPROLOL (METOPROLOL) (UNKNOWN) [Concomitant]
  4. ACYCLOVIR (ACICLOVIR) (UNKNOWN) [Concomitant]

REACTIONS (2)
  - Localised infection [None]
  - Drug ineffective [None]
